FAERS Safety Report 16795148 (Version 1)
Quarter: 2019Q3

REPORT INFORMATION
  Report Type: Spontaneous
  Country: FR (occurrence: FR)
  Receive Date: 20190911
  Receipt Date: 20190911
  Transmission Date: 20191005
  Serious: Yes (Life-Threatening)
  Sender: FDA-Public Use
  Company Number: FR-MYLANLABS-2019M1084752

PATIENT
  Age: 62 Year
  Sex: Male
  Weight: 70 kg

DRUGS (8)
  1. ATENOLOL. [Suspect]
     Active Substance: ATENOLOL
     Indication: HYPERTENSION
     Dosage: 100 MILLIGRAM, QD
     Route: 048
     Dates: end: 20190320
  2. JANUMET [Suspect]
     Active Substance: METFORMIN HYDROCHLORIDE\SITAGLIPTIN PHOSPHATE
     Indication: DIABETES MELLITUS
     Dosage: 2 DOSAGE FORM, QD
     Route: 048
     Dates: end: 20190320
  3. BRONCHOKOD [Suspect]
     Active Substance: CARBOCYSTEINE
     Indication: BRONCHITIS
     Dosage: 3 DOSAGE FORM, QD
     Route: 048
     Dates: start: 201902, end: 20190320
  4. AMOXICILLIN. [Suspect]
     Active Substance: AMOXICILLIN
     Indication: BRONCHITIS
     Dosage: UNK
     Route: 048
     Dates: start: 201903, end: 20190320
  5. ALDACTAZINE [Suspect]
     Active Substance: ALTHIAZIDE\SPIRONOLACTONE
     Indication: HYPERTENSION
     Dosage: UNK
     Route: 048
     Dates: end: 20190320
  6. PIVALONE                           /00803802/ [Suspect]
     Active Substance: TIXOCORTOL PIVALATE
     Indication: BRONCHITIS
     Dosage: UNK
     Route: 045
     Dates: start: 201902, end: 20190320
  7. RULID [Suspect]
     Active Substance: ROXITHROMYCIN
     Indication: BRONCHITIS
     Dosage: 2 DOSAGE FORM, QD
     Route: 048
     Dates: start: 201902, end: 201903
  8. SOLUPRED                           /00016201/ [Suspect]
     Active Substance: PREDNISOLONE
     Indication: BRONCHITIS
     Dosage: UNK
     Route: 048
     Dates: start: 201902, end: 20190320

REACTIONS (4)
  - Acute kidney injury [Recovered/Resolved]
  - Cardio-respiratory arrest [Recovered/Resolved]
  - Hyperkalaemia [Recovered/Resolved]
  - Lactic acidosis [Recovered/Resolved]

NARRATIVE: CASE EVENT DATE: 20190320
